FAERS Safety Report 10189588 (Version 2)
Quarter: 2014Q2

REPORT INFORMATION
  Report Type: Spontaneous
  Country: US (occurrence: US)
  Receive Date: 20140522
  Receipt Date: 20140624
  Transmission Date: 20141212
  Serious: Yes (Hospitalization)
  Sender: FDA-Public Use
  Company Number: US-GLAXOSMITHKLINE-A1073682A

PATIENT
  Age: 85 Year
  Sex: Male

DRUGS (15)
  1. ADVAIR [Suspect]
     Indication: CHRONIC OBSTRUCTIVE PULMONARY DISEASE
     Dosage: 1PUFF TWICE PER DAY
     Route: 055
  2. TRAMADOL [Suspect]
     Indication: PAIN
     Route: 008
  3. HYDROCODONE [Suspect]
     Indication: PAIN
     Route: 065
  4. RAPAFLO [Concomitant]
  5. VITAMIN D2 [Concomitant]
  6. FLUTICASONE [Concomitant]
  7. PREDNISONE [Concomitant]
  8. AMLODIPINE + BENAZEPRIL [Concomitant]
  9. SINGULAIR [Concomitant]
  10. VITAMIN B12 SHOT [Concomitant]
  11. PAROXETINE [Concomitant]
  12. BEANO [Concomitant]
  13. GAS-X [Concomitant]
  14. NEBULIZER [Concomitant]
  15. OXYGEN [Concomitant]

REACTIONS (14)
  - Dyspnoea [Not Recovered/Not Resolved]
  - Scoliosis [Recovering/Resolving]
  - Constipation [Recovering/Resolving]
  - Back pain [Recovering/Resolving]
  - Arthralgia [Recovering/Resolving]
  - Pain [Recovering/Resolving]
  - Diarrhoea [Recovering/Resolving]
  - Asthenia [Recovering/Resolving]
  - Fatigue [Recovering/Resolving]
  - Pollakiuria [Recovering/Resolving]
  - Surgery [Recovering/Resolving]
  - Chronic obstructive pulmonary disease [Recovering/Resolving]
  - Feeling abnormal [Recovering/Resolving]
  - Therapeutic response decreased [Unknown]
